FAERS Safety Report 18944046 (Version 1)
Quarter: 2021Q1

REPORT INFORMATION
  Report Type: Report from Study
  Country: None (occurrence: CH)
  Receive Date: 20210226
  Receipt Date: 20210226
  Transmission Date: 20210420
  Serious: Yes (Death)
  Sender: FDA-Public Use
  Company Number: CH-ABBVIE-21K-151-3791027-00

PATIENT
  Age: 80 Year
  Sex: Male

DRUGS (2)
  1. DUODOPA [Suspect]
     Active Substance: CARBIDOPA\LEVODOPA
     Indication: PARKINSON^S DISEASE
     Dosage: MD: 7 ML, CRD: 1.5 ML/H, CRN: 0 ML/H, ED: 1 M / 1 CASSETTE PER DAY
     Route: 050
     Dates: start: 20170821, end: 20190614
  2. DUODOPA [Suspect]
     Active Substance: CARBIDOPA\LEVODOPA
     Dosage: MD: 8 ML, CRD: 3 ML/H, CRN: 0 ML/H, ED: 1 M
     Route: 050
     Dates: start: 20190614

REACTIONS (1)
  - Death [Fatal]

NARRATIVE: CASE EVENT DATE: 20210224
